FAERS Safety Report 16985977 (Version 1)
Quarter: 2019Q4

REPORT INFORMATION
  Report Type: Spontaneous
  Country: US (occurrence: US)
  Receive Date: 20191031
  Receipt Date: 20191031
  Transmission Date: 20200122
  Serious: No
  Sender: FDA-Public Use
  Company Number: None

PATIENT
  Age: 63 Year
  Sex: Female
  Weight: 58.5 kg

DRUGS (4)
  1. COMBIPATCH (ESTRADIOL/NORETHINDRONE ACETATE TRANSDERMAL SYSTEM) [Suspect]
     Active Substance: ESTRADIOL\NORETHINDRONE ACETATE
     Indication: HORMONE REPLACEMENT THERAPY
     Dosage: ?          QUANTITY:1 TRANSDERMAL PATCH;OTHER FREQUENCY:TWICE WEEKLY;?
     Route: 062
     Dates: start: 20191021, end: 20191031
  2. COMBIPATCH (ESTRADIOL/NORETHINDRONE ACETATE TRANSDERMAL SYSTEM) [Suspect]
     Active Substance: ESTRADIOL\NORETHINDRONE ACETATE
     Indication: POSTMENOPAUSE
     Dosage: ?          QUANTITY:1 TRANSDERMAL PATCH;OTHER FREQUENCY:TWICE WEEKLY;?
     Route: 062
     Dates: start: 20191021, end: 20191031
  3. CALCIUM + VITAMIN D SUPPLEMENT [Concomitant]
  4. AMITRIPTILINE [Concomitant]

REACTIONS (2)
  - Product quality issue [None]
  - Postmenopausal haemorrhage [None]

NARRATIVE: CASE EVENT DATE: 20191021
